FAERS Safety Report 4793749-2 (Version None)
Quarter: 2005Q4

REPORT INFORMATION
  Report Type: 
  Country: None (occurrence: None)
  Receive Date: 20051011
  Receipt Date: 20050930
  Transmission Date: 20060501
  Serious: Yes (Hospitalization)
  Sender: FDA-Public Use
  Company Number: JP-JNJFOC-20051000285

PATIENT
  Sex: Male
  Weight: 57 kg

DRUGS (10)
  1. REMICADE [Suspect]
     Route: 042
  2. REMICADE [Suspect]
     Route: 042
  3. REMICADE [Suspect]
     Route: 042
  4. REMICADE [Suspect]
     Indication: CROHN'S DISEASE
     Route: 042
  5. IMURAN [Suspect]
     Indication: DRUG USE FOR UNKNOWN INDICATION
     Route: 048
  6. PREDONINE [Concomitant]
     Indication: CROHN'S DISEASE
     Route: 048
  7. PENTASA [Concomitant]
     Indication: CROHN'S DISEASE
     Route: 048
  8. LAC B [Concomitant]
     Indication: CROHN'S DISEASE
     Route: 048
  9. LOPEMIN [Concomitant]
     Route: 048
  10. MUCOSTA [Concomitant]
     Route: 048

REACTIONS (5)
  - CYTOMEGALOVIRUS VIRAEMIA [None]
  - DISSEMINATED INTRAVASCULAR COAGULATION [None]
  - DRUG INTERACTION [None]
  - HYPOXIA [None]
  - WHITE BLOOD CELL COUNT DECREASED [None]
